FAERS Safety Report 4788490-6 (Version None)
Quarter: 2005Q4

REPORT INFORMATION
  Report Type: 
  Country: None (occurrence: None)
  Receive Date: 20051005
  Receipt Date: 20050926
  Transmission Date: 20060501
  Serious: Yes (Other)
  Sender: FDA-Public Use
  Company Number: 2005UW14601

PATIENT
  Age: 54 Year
  Sex: Female

DRUGS (4)
  1. SEROQUEL [Suspect]
     Indication: BIPOLAR DISORDER
     Route: 048
     Dates: start: 20050501, end: 20050801
  2. SEROQUEL [Suspect]
     Route: 048
     Dates: start: 20050801
  3. VASOTEC [Concomitant]
     Indication: HYPERTENSION
     Route: 048
  4. GLYBURIDE [Concomitant]
     Indication: DIABETES MELLITUS NON-INSULIN-DEPENDENT
     Route: 048

REACTIONS (3)
  - ALOPECIA [None]
  - DRY SKIN [None]
  - HYPERHIDROSIS [None]
